FAERS Safety Report 11743945 (Version 1)
Quarter: 2015Q4

REPORT INFORMATION
  Report Type: Spontaneous
  Country: IT (occurrence: IT)
  Receive Date: 20151116
  Receipt Date: 20151116
  Transmission Date: 20160304
  Serious: Yes (Other)
  Sender: FDA-Public Use
  Company Number: IT-PFIZER INC-2015389639

PATIENT
  Age: 22 Year
  Sex: Male

DRUGS (3)
  1. TRIAMCINOLONE [Suspect]
     Active Substance: TRIAMCINOLONE
     Indication: BEHCET^S SYNDROME
     Dosage: UNK
     Dates: start: 200206, end: 200501
  2. PREDNISONE. [Suspect]
     Active Substance: PREDNISONE
     Dosage: MINIMUM 30 MG, DAILY
     Route: 048
     Dates: start: 200206, end: 200501
  3. METHYLPREDNISOLONE. [Suspect]
     Active Substance: METHYLPREDNISOLONE
     Indication: BEHCET^S SYNDROME
     Dosage: UNK
     Route: 042
     Dates: start: 200206, end: 200501

REACTIONS (3)
  - Osteoporosis [Unknown]
  - Spinal fracture [Unknown]
  - Drug ineffective [Unknown]
